FAERS Safety Report 7360433-0 (Version None)
Quarter: 2011Q1

REPORT INFORMATION
  Report Type: 
  Country: None (occurrence: None)
  Receive Date: 20110318
  Receipt Date: 20110218
  Transmission Date: 20110831
  Serious: Yes (Hospitalization)
  Sender: FDA-Public Use
  Company Number: US-BAYER-201017901NA

PATIENT
  Sex: Female
  Weight: 98 kg

DRUGS (10)
  1. OCELLA [Suspect]
     Indication: MENSTRUATION IRREGULAR
  2. YASMIN [Suspect]
     Indication: PREMENSTRUAL SYNDROME
  3. VIRAL VACCINES [Concomitant]
     Dosage: UNK
     Dates: start: 20080303
  4. OCELLA [Suspect]
     Indication: CONTRACEPTION
     Route: 048
     Dates: start: 20080301, end: 20090801
  5. YASMIN [Suspect]
     Indication: CONTRACEPTION
     Dosage: UNK UNK, QD
     Route: 048
     Dates: start: 20080301, end: 20090801
  6. AMOXICILLIN [Concomitant]
  7. YASMIN [Suspect]
     Indication: MENSTRUATION IRREGULAR
  8. TAMIFLU [Concomitant]
  9. YAZ [Suspect]
     Indication: PRODUCT USED FOR UNKNOWN INDICATION
  10. OCELLA [Suspect]
     Indication: PREMENSTRUAL SYNDROME

REACTIONS (4)
  - ABDOMINAL PAIN UPPER [None]
  - VOMITING [None]
  - GALLBLADDER DISORDER [None]
  - NAUSEA [None]
